FAERS Safety Report 18431069 (Version 1)
Quarter: 2020Q4

REPORT INFORMATION
  Report Type: Spontaneous
  Country: US (occurrence: US)
  Receive Date: 20201027
  Receipt Date: 20201027
  Transmission Date: 20210114
  Serious: Yes (Hospitalization)
  Sender: FDA-Public Use
  Company Number: None

PATIENT
  Age: 48 Year
  Sex: Female

DRUGS (1)
  1. BOTOX [Suspect]
     Active Substance: ONABOTULINUMTOXINA
     Route: 023
     Dates: start: 20160416

REACTIONS (3)
  - Migraine [None]
  - Swelling face [None]
  - Insomnia [None]

NARRATIVE: CASE EVENT DATE: 2020
